FAERS Safety Report 4541572-6 (Version None)
Quarter: 2004Q4

REPORT INFORMATION
  Report Type: 
  Country: None (occurrence: None)
  Receive Date: 20041230
  Receipt Date: 20041125
  Transmission Date: 20050328
  Serious: Yes (Death, Other)
  Sender: FDA-Public Use
  Company Number: PHBS2004JP15843

PATIENT
  Age: 6 Year
  Sex: Male

DRUGS (2)
  1. STEROIDS NOS [Concomitant]
     Dosage: PULSE THERAPY
     Route: 065
  2. CYCLOSPORINE [Suspect]
     Indication: EPSTEIN-BARR VIRUS INFECTION
     Route: 065

REACTIONS (3)
  - CEREBRAL HAEMORRHAGE [None]
  - HYPERTENSION [None]
  - VASCULITIS [None]
